FAERS Safety Report 25003484 (Version 1)
Quarter: 2025Q1

REPORT INFORMATION
  Report Type: Spontaneous
  Country: GB (occurrence: GB)
  Receive Date: 20250224
  Receipt Date: 20250224
  Transmission Date: 20250408
  Serious: Yes (Other)
  Sender: MYLAN
  Company Number: GB-MYLANLABS-2025M1014906

PATIENT
  Sex: Male

DRUGS (10)
  1. CLOZARIL [Suspect]
     Active Substance: CLOZAPINE
     Indication: Schizoaffective disorder
  2. CLOZARIL [Suspect]
     Active Substance: CLOZAPINE
  3. ENOXAPARIN [Concomitant]
     Active Substance: ENOXAPARIN
  4. CHOLECALCIFEROL [Concomitant]
     Active Substance: CHOLECALCIFEROL
  5. CLONAZEPAM [Concomitant]
     Active Substance: CLONAZEPAM
  6. IRON [Concomitant]
     Active Substance: IRON
  7. CLOPIDOGREL [Concomitant]
     Active Substance: CLOPIDOGREL BISULFATE
     Indication: Transient ischaemic attack
  8. VALPROATE [Concomitant]
     Active Substance: VALPROIC ACID
  9. LITHIUM [Concomitant]
     Active Substance: LITHIUM
  10. NALTREXONE [Concomitant]
     Active Substance: NALTREXONE

REACTIONS (4)
  - Chronic lymphocytic leukaemia [Unknown]
  - Treatment noncompliance [Unknown]
  - Therapy cessation [Unknown]
  - Off label use [Unknown]
